FAERS Safety Report 19188258 (Version 4)
Quarter: 2021Q2

REPORT INFORMATION
  Report Type: Spontaneous
  Country: JP (occurrence: JP)
  Receive Date: 20210428
  Receipt Date: 20210624
  Transmission Date: 20210717
  Serious: Yes (Other)
  Sender: FDA-Public Use
  Company Number: NVSJ2021JP006414

PATIENT
  Age: 85 Year
  Sex: Female

DRUGS (11)
  1. PREDONINE [Concomitant]
     Active Substance: PREDNISOLONE
     Indication: SERONEGATIVE ARTHRITIS
     Dosage: 1.5 DF, QD
     Route: 048
     Dates: start: 20200121
  2. CALFINA [Concomitant]
     Indication: OSTEOPOROSIS
     Dosage: 1 DF, QD
     Route: 048
     Dates: start: 20200121
  3. ELIQUIS [Concomitant]
     Active Substance: APIXABAN
     Indication: VENOUS THROMBOSIS LIMB
     Dosage: 1 DF, BID
     Route: 048
     Dates: start: 20200121
  4. ONON [Concomitant]
     Active Substance: PRANLUKAST
     Indication: ASTHMA
     Dosage: 1 DF, QD
     Route: 048
     Dates: start: 20200919
  5. RELVAR [Concomitant]
     Active Substance: FLUTICASONE FUROATE\VILANTEROL TRIFENATATE
     Indication: ASTHMA
     Dosage: 200 SINGLE INHALATION, QD
     Route: 055
     Dates: start: 20200919
  6. EQUMET [Suspect]
     Active Substance: METFORMIN HYDROCHLORIDE\VILDAGLIPTIN
     Indication: STEROID DIABETES
     Dosage: 1 DF (METFORMIN HYDROCHLORIDE 500 MG/VILDAGLIPTIN 50 MG), BID
     Route: 048
     Dates: start: 20210329, end: 20210401
  7. NIFEDIPINE. [Concomitant]
     Active Substance: NIFEDIPINE
     Dosage: 1 DF, BID
     Route: 048
     Dates: start: 20200204
  8. ZETIA [Concomitant]
     Active Substance: EZETIMIBE
     Indication: DYSLIPIDAEMIA
     Dosage: 1 DF, QD
     Route: 048
     Dates: start: 20200511
  9. NIFEDIPINE. [Concomitant]
     Active Substance: NIFEDIPINE
     Indication: HYPERTENSION
     Dosage: 1 DF, QD
     Route: 048
     Dates: start: 20200121, end: 20200203
  10. SENNOSIDE [Concomitant]
     Active Substance: SENNOSIDES
     Indication: CONSTIPATION
     Dosage: 1 DF, QD
     Route: 048
     Dates: start: 20200121
  11. LANSOPRAZOLE. [Concomitant]
     Active Substance: LANSOPRAZOLE
     Indication: GASTROOESOPHAGEAL REFLUX DISEASE
     Dosage: 1 DF, QD
     Route: 048
     Dates: start: 20200121

REACTIONS (8)
  - Abnormal behaviour [Recovered/Resolved]
  - Hallucination, visual [Unknown]
  - Delirium [Recovered/Resolved]
  - Poriomania [Unknown]
  - Product use in unapproved indication [Recovered/Resolved]
  - Blood potassium decreased [Unknown]
  - Disorientation [Unknown]
  - Anal incontinence [Unknown]

NARRATIVE: CASE EVENT DATE: 20210330
